FAERS Safety Report 9318474 (Version 1)
Quarter: 2013Q2

REPORT INFORMATION
  Report Type: Spontaneous
  Country: US (occurrence: US)
  Receive Date: 20130530
  Receipt Date: 20130530
  Transmission Date: 20140414
  Serious: No
  Sender: FDA-Public Use
  Company Number: US-GLAXOSMITHKLINE-A1015300A

PATIENT
  Age: 54 Year
  Sex: Female

DRUGS (1)
  1. VENTOLIN HFA [Suspect]
     Indication: PRODUCT USED FOR UNKNOWN INDICATION
     Dosage: 90MCG UNKNOWN
     Dates: start: 20110912

REACTIONS (4)
  - Malaise [Unknown]
  - Multiple allergies [Unknown]
  - Asthma [Unknown]
  - Sinus disorder [Unknown]
